FAERS Safety Report 8013306-4 (Version None)
Quarter: 2011Q4

REPORT INFORMATION
  Report Type: 
  Country: None (occurrence: None)
  Receive Date: 20111229
  Receipt Date: 20111221
  Transmission Date: 20120403
  Serious: Yes (Hospitalization, Other)
  Sender: FDA-Public Use
  Company Number: PHHY2011CA82606

PATIENT
  Sex: Male

DRUGS (8)
  1. TOBI [Suspect]
     Dates: start: 20111101
  2. RANITIDINE [Concomitant]
  3. CATAENZYMES [Concomitant]
  4. TOBI [Suspect]
     Indication: CYSTIC FIBROSIS
     Dosage: 112 MG, BID
     Dates: start: 20110823, end: 20110905
  5. PULMOZYME [Concomitant]
  6. SINGULAIR [Concomitant]
  7. FLORESTOR [Concomitant]
  8. AQUADEK [Concomitant]

REACTIONS (2)
  - BRONCHOPULMONARY ASPERGILLOSIS ALLERGIC [None]
  - HAEMOPTYSIS [None]
